FAERS Safety Report 8155647-6 (Version None)
Quarter: 2012Q1

REPORT INFORMATION
  Report Type: 
  Country: None (occurrence: None)
  Receive Date: 20120222
  Receipt Date: 20120216
  Transmission Date: 20120608
  Serious: No
  Sender: FDA-Public Use
  Company Number: US-PFIZER INC-2012042539

PATIENT
  Sex: Male

DRUGS (3)
  1. REVATIO [Suspect]
     Indication: LUNG DISORDER
     Dosage: 20 MG, 3X/DAY
     Route: 048
     Dates: start: 20120213
  2. REVATIO [Suspect]
     Indication: CARDIAC DISORDER
     Dosage: 20 MG, 2X/DAY
     Route: 048
     Dates: start: 20120211, end: 20120201
  3. REVATIO [Suspect]
     Dosage: 20 MG, UNK
     Route: 048
     Dates: start: 20120201, end: 20120216

REACTIONS (3)
  - DYSPNOEA [None]
  - SINUS DISORDER [None]
  - NASAL OEDEMA [None]
